FAERS Safety Report 5424271-8 (Version None)
Quarter: 2007Q3

REPORT INFORMATION
  Report Type: 
  Country: None (occurrence: None)
  Receive Date: 20070727
  Receipt Date: 20070517
  Transmission Date: 20080115
  Serious: No
  Sender: FDA-Public Use
  Company Number: 263901

PATIENT
  Age: 63 Year
  Sex: Female

DRUGS (3)
  1. LEVEMIR [Suspect]
     Indication: INSULIN-REQUIRING TYPE II DIABETES MELLITUS
     Dosage: SUBCUTANEOUS
     Route: 058
  2. SYNTHROID (LEVOTHYROXINE SODIUM) POWDER AND SOLVENT FOR SOLUTION FOR I [Concomitant]
  3. GLIPIZIDE [Concomitant]

REACTIONS (2)
  - ARTHRALGIA [None]
  - PELVIC PAIN [None]
